FAERS Safety Report 10706193 (Version 1)
Quarter: 2015Q1

REPORT INFORMATION
  Report Type: Spontaneous
  Country: GB (occurrence: GB)
  Receive Date: 20150113
  Receipt Date: 20150113
  Transmission Date: 20150721
  Serious: Yes (Hospitalization, Other)
  Sender: FDA-Public Use
  Company Number: PHHY2015GB001467

PATIENT
  Age: 46 Year
  Sex: Female
  Weight: 74.9 kg

DRUGS (3)
  1. FLUCLOXACILLIN [Suspect]
     Active Substance: FLUCLOXACILLIN
     Indication: BLISTER INFECTED
     Dosage: 250 MG, QID
     Route: 065
     Dates: start: 20130205, end: 201303
  2. AMLODIPINE [Suspect]
     Active Substance: AMLODIPINE BESYLATE
     Indication: HYPERTENSION
     Dosage: 5 MG, QD
     Route: 065
     Dates: start: 2011, end: 201303
  3. SERC [Suspect]
     Active Substance: BETAHISTINE HYDROCHLORIDE
     Indication: VERTIGO
     Dosage: 250 MG, TID
     Route: 065
     Dates: start: 1993, end: 201303

REACTIONS (5)
  - Vertigo [Not Recovered/Not Resolved]
  - Palpitations [Not Recovered/Not Resolved]
  - Phobia [Not Recovered/Not Resolved]
  - Alopecia [Not Recovered/Not Resolved]
  - Arthralgia [Not Recovered/Not Resolved]

NARRATIVE: CASE EVENT DATE: 2011
